FAERS Safety Report 7792896-0 (Version None)
Quarter: 2011Q4

REPORT INFORMATION
  Report Type: 
  Country: None (occurrence: None)
  Receive Date: 20111003
  Receipt Date: 20110919
  Transmission Date: 20120403
  Serious: Yes (Other)
  Sender: FDA-Public Use
  Company Number: PHHY2011BR82622

PATIENT
  Age: 59 Year
  Sex: Male

DRUGS (2)
  1. CHLORTHALIDONE [Concomitant]
     Dosage: 25 MG, PER DAY
  2. DIOVAN [Suspect]
     Indication: HYPERTENSION
     Dosage: 320 MG, UNK
     Dates: start: 20080801

REACTIONS (9)
  - PROTEINURIA [None]
  - OEDEMA [None]
  - CREATININE URINE INCREASED [None]
  - GLOMERULONEPHRITIS MEMBRANOPROLIFERATIVE [None]
  - HAEMATURIA [None]
  - HYPERTENSION [None]
  - OEDEMA PERIPHERAL [None]
  - URINARY RETENTION [None]
  - BLOOD PRESSURE INADEQUATELY CONTROLLED [None]
